FAERS Safety Report 9162585 (Version 2)
Quarter: 2013Q1

REPORT INFORMATION
  Report Type: Spontaneous
  Country: US (occurrence: None)
  Receive Date: 20130221
  Receipt Date: 20130221
  Transmission Date: 20140127
  Serious: Yes (Other)
  Sender: FDA-Public Use
  Company Number: CRC-13-106

PATIENT
  Sex: Female

DRUGS (1)
  1. WYGESIC [Suspect]
     Dosage: YEAR  1981
     Dates: start: 1981

REACTIONS (1)
  - Anaphylactic reaction [None]
